FAERS Safety Report 16998072 (Version 1)
Quarter: 2019Q4

REPORT INFORMATION
  Report Type: Spontaneous
  Country: US (occurrence: US)
  Receive Date: 20191105
  Receipt Date: 20191105
  Transmission Date: 20200122
  Serious: Yes (Other)
  Sender: FDA-Public Use
  Company Number: None

PATIENT
  Age: 37 Year
  Sex: Female

DRUGS (1)
  1. QVAR REDIHALER [Suspect]
     Active Substance: BECLOMETHASONE DIPROPIONATE
     Indication: BRONCHOSPASM
     Dosage: ?          QUANTITY:1 INHALER;?
     Route: 055
     Dates: start: 20191004, end: 20191104

REACTIONS (2)
  - Drug dose omission by device [None]
  - Device malfunction [None]

NARRATIVE: CASE EVENT DATE: 20191005
